FAERS Safety Report 8362563-3 (Version None)
Quarter: 2012Q2

REPORT INFORMATION
  Report Type: 
  Country: None (occurrence: None)
  Receive Date: 20120516
  Receipt Date: 20120507
  Transmission Date: 20120825
  Serious: Yes (Other)
  Sender: FDA-Public Use
  Company Number: JP-VERTEX PHARMACEUTICALS INC.-AE-2012-004624

PATIENT
  Age: 42 Year
  Sex: Male

DRUGS (11)
  1. TELAVIC (TELAPREVIR) [Suspect]
     Indication: HEPATITIS C
     Route: 048
     Dates: start: 20120126, end: 20120313
  2. REBETOL [Concomitant]
     Indication: HEPATITIS C
     Route: 048
     Dates: start: 20120126, end: 20120228
  3. PEGINTERFERON ALFA-2B [Concomitant]
     Indication: HEPATITIS C
     Route: 051
     Dates: start: 20120126
  4. AMOBAN [Concomitant]
     Route: 048
     Dates: start: 20120128
  5. LENDORMIN [Concomitant]
     Route: 048
     Dates: start: 20120128
  6. URSO 250 [Concomitant]
     Route: 048
     Dates: end: 20120202
  7. MUCOSTA [Concomitant]
     Route: 048
     Dates: start: 20120126
  8. REBETOL [Concomitant]
     Route: 048
     Dates: start: 20120229
  9. ANTEBATE OINTMENT [Concomitant]
     Route: 061
     Dates: start: 20120229
  10. LOXONIN [Concomitant]
     Route: 048
     Dates: start: 20120126
  11. URSO 250 [Concomitant]
     Route: 048
     Dates: start: 20120203

REACTIONS (1)
  - ERYTHEMA MULTIFORME [None]
